FAERS Safety Report 6287088-0 (Version None)
Quarter: 2009Q3

REPORT INFORMATION
  Report Type: 
  Country: None (occurrence: None)
  Receive Date: 20090716
  Receipt Date: 20090323
  Transmission Date: 20100115
  Serious: Yes (Other)
  Sender: FDA-Public Use
  Company Number: 2009BI004600

PATIENT
  Age: 36 Year
  Sex: Female

DRUGS (2)
  1. AVONEX [Suspect]
     Indication: MULTIPLE SCLEROSIS
     Dosage: 30 UG;QW;IM
     Route: 030
     Dates: start: 20090117
  2. PROVIGIL (CON.) [Concomitant]

REACTIONS (13)
  - ANXIETY [None]
  - ARTHRALGIA [None]
  - BLISTER [None]
  - CHEST PAIN [None]
  - CONVULSION [None]
  - FLUSHING [None]
  - GAIT DISTURBANCE [None]
  - LYMPHADENOPATHY [None]
  - MOOD ALTERED [None]
  - MUSCULAR WEAKNESS [None]
  - NECK PAIN [None]
  - ORTHOSTATIC HYPOTENSION [None]
  - PARAESTHESIA [None]
